FAERS Safety Report 6848919-6 (Version None)
Quarter: 2010Q3

REPORT INFORMATION
  Report Type: 
  Country: None (occurrence: None)
  Receive Date: 20100716
  Receipt Date: 20071105
  Transmission Date: 20110219
  Serious: No
  Sender: FDA-Public Use
  Company Number: US-PFIZER INC-2007075976

PATIENT
  Sex: Male
  Weight: 90.9 kg

DRUGS (9)
  1. CHANTIX [Suspect]
     Indication: SMOKING CESSATION THERAPY
     Dates: start: 20070828
  2. FISH OIL [Interacting]
  3. NIASPAN [Concomitant]
  4. ATENOLOL [Concomitant]
  5. HYDROCHLOROTHIAZIDE [Concomitant]
  6. ACETYLSALICYLIC ACID [Concomitant]
  7. FOLIC ACID [Concomitant]
  8. CENTRUM [Concomitant]
  9. SPIRONOLACTONE [Concomitant]
     Dates: start: 20070814

REACTIONS (4)
  - DRUG INTERACTION [None]
  - MUSCULAR WEAKNESS [None]
  - SOMNOLENCE [None]
  - TREMOR [None]
